FAERS Safety Report 4577264-7 (Version None)
Quarter: 2005Q1

REPORT INFORMATION
  Report Type: 
  Country: None (occurrence: None)
  Receive Date: 20050209
  Receipt Date: 20050124
  Transmission Date: 20050727
  Serious: No
  Sender: FDA-Public Use
  Company Number: TRP_0035_2004

PATIENT
  Age: 57 Year
  Sex: Male

DRUGS (4)
  1. RIBASPHERE [Suspect]
     Indication: HEPATITIS C
     Dosage: 1200 MG QDAY PO
     Route: 048
     Dates: start: 20041026
  2. INTERFERON ALFACON-1/INTERMUNE [Suspect]
     Indication: HEPATITIS C
     Dosage: 9 MCG SC
     Route: 058
     Dates: start: 20041026
  3. GLUCOVANCE [Concomitant]
  4. ATENOLOL [Concomitant]

REACTIONS (2)
  - BLOOD URIC ACID INCREASED [None]
  - HAEMOLYTIC ANAEMIA [None]
